FAERS Safety Report 9949608 (Version 2)
Quarter: 2014Q1

REPORT INFORMATION
  Report Type: Report from Study
  Country: NL (occurrence: NL)
  Receive Date: 20140304
  Receipt Date: 20140317
  Transmission Date: 20141002
  Serious: Yes (Death, Hospitalization)
  Sender: FDA-Public Use
  Company Number: NL-JNJFOC-20140213364

PATIENT
  Sex: Male
  Weight: 86 kg

DRUGS (4)
  1. ABIRATERONE ACETATE [Suspect]
     Indication: PROSTATE CANCER
     Route: 048
     Dates: start: 20121221
  2. PREDNISONE [Suspect]
     Indication: PROSTATE CANCER
     Route: 065
     Dates: start: 201212
  3. DEXAMETHASONE [Concomitant]
     Dosage: SCHEDULE FOR WITHDRAWAL AFTER RADIOTHERAPY DEC-2012
     Route: 065
  4. PARACETAMOL [Concomitant]
     Route: 065

REACTIONS (5)
  - Prostate cancer [Fatal]
  - Pleural effusion [Fatal]
  - Pneumonia [Unknown]
  - Urinary tract infection [Unknown]
  - Metastases to spine [Unknown]
